FAERS Safety Report 10042393 (Version 2)
Quarter: 2014Q2

REPORT INFORMATION
  Report Type: Spontaneous
  Country: SE (occurrence: SE)
  Receive Date: 20140327
  Receipt Date: 20140527
  Transmission Date: 20141212
  Serious: Yes (Other)
  Sender: FDA-Public Use
  Company Number: SE-ACTAVIS-2014-05622

PATIENT
  Age: 50 Year
  Sex: Female

DRUGS (1)
  1. LAMOTRIGIN ACTAVIS [Suspect]
     Indication: BIPOLAR DISORDER
     Dosage: UNK
     Route: 065
     Dates: end: 20140228

REACTIONS (9)
  - Hallucination [Unknown]
  - Oedema [Unknown]
  - Alopecia [Unknown]
  - Nail bed disorder [Unknown]
  - Muscle spasms [Unknown]
  - Hypoaesthesia [Unknown]
  - Vertigo [Unknown]
  - Dry skin [Unknown]
  - Derealisation [Unknown]
